FAERS Safety Report 24843049 (Version 1)
Quarter: 2025Q1

REPORT INFORMATION
  Report Type: Report from Study
  Country: US (occurrence: US)
  Receive Date: 20250115
  Receipt Date: 20250115
  Transmission Date: 20250408
  Serious: No
  Sender: HRA PHARMA
  Company Number: US-ORG100014127-2024000067

PATIENT
  Age: 55 Year
  Sex: Female

DRUGS (4)
  1. LYSODREN [Suspect]
     Active Substance: MITOTANE
     Indication: Gastric cancer
     Dosage: 500 MG; 20 TABLETS DAILY, TITRATED DOSE BY MD AS PER BLOOD LEVEL
     Route: 048
  2. Calcium tab 600 mg [Concomitant]
     Indication: Product used for unknown indication
  3. CORTISONE OIN 1%; [Concomitant]
     Indication: Product used for unknown indication
  4. VITAMIN D3 CAP 2000UNIT [Concomitant]
     Indication: Product used for unknown indication

REACTIONS (2)
  - Pigmentation disorder [Not Recovered/Not Resolved]
  - Nausea [Not Recovered/Not Resolved]

NARRATIVE: CASE EVENT DATE: 20230101
